FAERS Safety Report 5802900-4 (Version None)
Quarter: 2008Q3

REPORT INFORMATION
  Report Type: 
  Country: None (occurrence: None)
  Receive Date: 20080703
  Receipt Date: 20080627
  Transmission Date: 20090109
  Serious: Yes (Other)
  Sender: FDA-Public Use
  Company Number: 029860

PATIENT
  Age: 16 Year
  Sex: Female
  Weight: 61.2 kg

DRUGS (2)
  1. TRI-SPRINTEC [Suspect]
     Indication: ACNE
     Dosage: 1 ^ACTIVE^ TAB, QD X 84, 7 INERT
     Dates: start: 20070601
  2. TRI-SPRINTEC [Suspect]
     Indication: DYSMENORRHOEA
     Dosage: 1 ^ACTIVE^ TAB, QD X 84, 7 INERT
     Dates: start: 20070601

REACTIONS (1)
  - EPILEPSY [None]
